FAERS Safety Report 10868234 (Version 2)
Quarter: 2015Q1

REPORT INFORMATION
  Report Type: Report from Study
  Country: US (occurrence: US)
  Receive Date: 20150225
  Receipt Date: 20150324
  Transmission Date: 20150721
  Serious: No
  Sender: FDA-Public Use
  Company Number: US-GILEAD-2015-0139340

PATIENT
  Age: 64 Year
  Sex: Male

DRUGS (4)
  1. LASIX [Concomitant]
     Active Substance: FUROSEMIDE
  2. AMBRISENTAN [Suspect]
     Active Substance: AMBRISENTAN
     Indication: PRODUCT USED FOR UNKNOWN INDICATION
     Dosage: 10 MG, QD
     Route: 065
     Dates: start: 20150206
  3. SILDENAFIL. [Concomitant]
     Active Substance: SILDENAFIL
  4. REVATIO [Concomitant]
     Active Substance: SILDENAFIL CITRATE

REACTIONS (4)
  - Swelling [Unknown]
  - Headache [Recovered/Resolved]
  - Peripheral swelling [Unknown]
  - Oedema [Unknown]

NARRATIVE: CASE EVENT DATE: 201502
